FAERS Safety Report 9629353 (Version 1)
Quarter: 2013Q4

REPORT INFORMATION
  Report Type: Spontaneous
  Country: US (occurrence: US)
  Receive Date: 20131017
  Receipt Date: 20131017
  Transmission Date: 20140711
  Serious: No
  Sender: FDA-Public Use
  Company Number: US-ASTRAZENECA-2013SE47422

PATIENT
  Sex: Male

DRUGS (4)
  1. CRESTOR [Suspect]
     Route: 048
  2. ATORVASTATIN [Suspect]
     Route: 065
  3. LOVASTATIN [Suspect]
     Route: 065
  4. COLCHICINE [Concomitant]
     Indication: GOUT

REACTIONS (2)
  - Gout [Unknown]
  - Myalgia [Unknown]
